FAERS Safety Report 17558983 (Version 1)
Quarter: 2020Q1

REPORT INFORMATION
  Report Type: Report from Study
  Country: TW (occurrence: TW)
  Receive Date: 20200319
  Receipt Date: 20200319
  Transmission Date: 20200409
  Serious: Yes (Other)
  Sender: FDA-Public Use
  Company Number: TW-REGENERON PHARMACEUTICALS, INC.-2020-25417

PATIENT

DRUGS (4)
  1. EYLEA [Suspect]
     Active Substance: AFLIBERCEPT
     Dosage: 0.05 ML, ONCE,RIGHT EYE
     Route: 031
     Dates: start: 20200213, end: 20200213
  2. CRAVIT [Concomitant]
     Active Substance: LEVOFLOXACIN
     Dosage: 1 GTT, QID
     Dates: start: 20200213, end: 20200226
  3. EYLEA [Suspect]
     Active Substance: AFLIBERCEPT
     Indication: PRODUCT USED FOR UNKNOWN INDICATION
     Dosage: 0.05 ML, ONCE,RIGHT EYE
     Route: 031
     Dates: start: 20200110, end: 20200110
  4. CRAVIT [Concomitant]
     Active Substance: LEVOFLOXACIN
     Indication: PRODUCT USED FOR UNKNOWN INDICATION
     Dosage: 1 GTT, QID
     Dates: start: 20200110, end: 20200123

REACTIONS (6)
  - Conjunctivitis [Unknown]
  - Chorioretinopathy [Unknown]
  - Contraindicated product administered [Unknown]
  - Contraindicated product administered [Unknown]
  - Cataract [Unknown]
  - Off label use [Unknown]

NARRATIVE: CASE EVENT DATE: 20200113
